FAERS Safety Report 8571514-8 (Version None)
Quarter: 2012Q3

REPORT INFORMATION
  Report Type: 
  Country: None (occurrence: None)
  Receive Date: 20120806
  Receipt Date: 20120723
  Transmission Date: 20120928
  Serious: No
  Sender: FDA-Public Use
  Company Number: JP-JNJFOC-20120800174

PATIENT
  Sex: Male
  Weight: 67 kg

DRUGS (9)
  1. FENTANYL-100 [Suspect]
     Indication: PAIN
     Route: 062
     Dates: start: 20111219
  2. VOLTAREN [Concomitant]
     Indication: PAIN
     Route: 048
     Dates: start: 20111219
  3. LYRICA [Concomitant]
     Indication: PAIN
     Route: 048
     Dates: start: 20111219
  4. MAGMITT [Concomitant]
     Route: 048
     Dates: start: 20111219
  5. CYTOTEC [Concomitant]
     Indication: PAIN
     Route: 048
     Dates: end: 20111219
  6. NEXIUM [Concomitant]
     Route: 048
     Dates: start: 20111219
  7. CYTOTEC [Concomitant]
     Route: 048
     Dates: start: 20111219
  8. VITAMIN B12 [Concomitant]
     Indication: PAIN
     Route: 048
     Dates: start: 20111219
  9. PURSENNID [Concomitant]
     Route: 048
     Dates: start: 20111219

REACTIONS (2)
  - DRUG INTOLERANCE [None]
  - WRONG TECHNIQUE IN DRUG USAGE PROCESS [None]
